FAERS Safety Report 8205355-8 (Version None)
Quarter: 2012Q1

REPORT INFORMATION
  Report Type: 
  Country: None (occurrence: None)
  Receive Date: 20120313
  Receipt Date: 20120305
  Transmission Date: 20120608
  Serious: Yes (Other)
  Sender: FDA-Public Use
  Company Number: CA-JNJFOC-20120302301

PATIENT
  Age: 46 Year
  Sex: Female

DRUGS (1)
  1. REMICADE [Suspect]
     Indication: CROHN'S DISEASE
     Route: 042
     Dates: start: 20111101

REACTIONS (4)
  - SKIN LESION [None]
  - INTESTINAL HAEMORRHAGE [None]
  - MENSTRUATION IRREGULAR [None]
  - HAEMATEMESIS [None]
